FAERS Safety Report 12312363 (Version 3)
Quarter: 2016Q3

REPORT INFORMATION
  Report Type: Spontaneous
  Country: US (occurrence: US)
  Receive Date: 20160428
  Receipt Date: 20160711
  Transmission Date: 20161109
  Serious: Yes (Other)
  Sender: FDA-Public Use
  Company Number: US-UCBSA-2016011083

PATIENT
  Age: 45 Year
  Sex: Female
  Weight: 99 kg

DRUGS (3)
  1. KEPPRA [Suspect]
     Active Substance: LEVETIRACETAM
     Dosage: 750 MG, 2X/DAY (BID) (1 TABLET)
     Route: 048
     Dates: start: 2015, end: 20150915
  2. KEPPRA [Suspect]
     Active Substance: LEVETIRACETAM
     Indication: COMPLEX PARTIAL SEIZURES
     Dosage: 0.5 DF, 2X/DAY (BID) (750 MG  HALF TABLET)
     Route: 048
     Dates: start: 20150818, end: 20150822
  3. COPAXONE [Suspect]
     Active Substance: GLATIRAMER ACETATE
     Indication: PRODUCT USED FOR UNKNOWN INDICATION
     Dosage: UNK

REACTIONS (4)
  - Anger [Recovered/Resolved]
  - Suicidal ideation [Recovered/Resolved]
  - Seizure [Unknown]
  - Multiple sclerosis [Unknown]

NARRATIVE: CASE EVENT DATE: 20150818
